FAERS Safety Report 5120440-5 (Version None)
Quarter: 2006Q4

REPORT INFORMATION
  Report Type: 
  Country: None (occurrence: None)
  Receive Date: 20061002
  Receipt Date: 20060925
  Transmission Date: 20070319
  Serious: Yes (Death)
  Sender: FDA-Public Use
  Company Number: GXKR2006GB05921

PATIENT
  Age: 75 Year
  Sex: Female

DRUGS (7)
  1. PAROXETINE HCL [Suspect]
     Indication: DEPRESSION
     Dosage: 20 MG, QD, ORAL
     Route: 048
     Dates: start: 20060622, end: 20060823
  2. FUROSEMIDE [Concomitant]
  3. QUININE SULFATE [Concomitant]
  4. FLUTICASONE PROPIONATE W/SALMETEROL XINAFOATE (FLUTICASONE PROPIONATE, [Concomitant]
  5. SPIRIVA [Concomitant]
  6. TRAMADOL HCL [Concomitant]
  7. VENTOLIN [Concomitant]

REACTIONS (2)
  - COMA [None]
  - HEPATIC FAILURE [None]
